FAERS Safety Report 5926899-5 (Version None)
Quarter: 2008Q4

REPORT INFORMATION
  Report Type: 
  Country: None (occurrence: None)
  Receive Date: 20081022
  Receipt Date: 20081015
  Transmission Date: 20090506
  Serious: Yes (Other)
  Sender: FDA-Public Use
  Company Number: US-BAYER-200814062BCC

PATIENT
  Sex: Female
  Weight: 82 kg

DRUGS (1)
  1. ASPIRIN [Suspect]
     Indication: INTENTIONAL OVERDOSE
     Dosage: TOTAL DAILY DOSE: 16250 MG  UNIT DOSE: 325 MG
     Route: 048
     Dates: start: 20081012

REACTIONS (4)
  - ABDOMINAL PAIN UPPER [None]
  - HYPERHIDROSIS [None]
  - NERVOUSNESS [None]
  - VOMITING [None]
